FAERS Safety Report 17318444 (Version 6)
Quarter: 2021Q4

REPORT INFORMATION
  Report Type: Report from Study
  Country: CN (occurrence: CN)
  Receive Date: 20200124
  Receipt Date: 20211217
  Transmission Date: 20220303
  Serious: Yes (Other)
  Sender: FDA-Public Use
  Company Number: NVSC2020CN016388

PATIENT
  Sex: Male

DRUGS (33)
  1. ENTRESTO [Suspect]
     Active Substance: SACUBITRIL\VALSARTAN
     Indication: Cardiac failure chronic
     Dosage: 25 MG
     Route: 048
     Dates: start: 20190808
  2. CLOPIDOGREL BISULFATE [Concomitant]
     Active Substance: CLOPIDOGREL BISULFATE
     Indication: Pre-existing disease
     Dosage: 75 MG
     Route: 048
     Dates: start: 200304, end: 20190903
  3. CLOPIDOGREL BISULFATE [Concomitant]
     Active Substance: CLOPIDOGREL BISULFATE
     Dosage: 75 MG
     Route: 048
     Dates: end: 20200410
  4. TORSEMIDE [Concomitant]
     Active Substance: TORSEMIDE
     Indication: Pre-existing disease
     Dosage: 10 MG
     Route: 048
     Dates: start: 200304, end: 20190903
  5. TORSEMIDE [Concomitant]
     Active Substance: TORSEMIDE
     Dosage: 10 MG
     Route: 048
     Dates: end: 20200410
  6. TOLVAPTAN [Concomitant]
     Active Substance: TOLVAPTAN
     Indication: Pre-existing disease
     Dosage: 10 MG
     Route: 048
     Dates: start: 200304, end: 20190903
  7. TOLVAPTAN [Concomitant]
     Active Substance: TOLVAPTAN
     Dosage: 10 MG
     Route: 048
     Dates: end: 20200410
  8. MONTELUKAST SODIUM [Concomitant]
     Active Substance: MONTELUKAST SODIUM
     Indication: Pre-existing disease
     Dosage: 10 MG
     Route: 048
     Dates: start: 201904, end: 20190903
  9. MONTELUKAST SODIUM [Concomitant]
     Active Substance: MONTELUKAST SODIUM
     Dosage: 10 MG
     Route: 048
     Dates: end: 20200410
  10. KETOTIFEN FUMARATE [Concomitant]
     Active Substance: KETOTIFEN FUMARATE
     Indication: Pre-existing disease
     Dosage: 1 MG
     Route: 048
     Dates: start: 201904, end: 20190903
  11. KETOTIFEN FUMARATE [Concomitant]
     Active Substance: KETOTIFEN FUMARATE
     Dosage: 1 MG
     Route: 048
     Dates: end: 20200410
  12. PIPERAZINE FERULAT [Concomitant]
     Indication: Pre-existing disease
     Dosage: 150 MG
     Route: 048
     Dates: start: 201902, end: 20190903
  13. PIPERAZINE FERULAT [Concomitant]
     Dosage: 150 MG
     Route: 048
     Dates: end: 20200410
  14. ALLOPURINE [Concomitant]
     Indication: Pre-existing disease
     Dosage: 1 DF
     Route: 048
     Dates: start: 201904, end: 20190903
  15. ALLOPURINE [Concomitant]
     Dosage: 1 DF
     Route: 048
     Dates: end: 20200410
  16. WARFARIN [Concomitant]
     Active Substance: WARFARIN
     Indication: Pre-existing disease
     Dosage: 3 MG
     Route: 048
     Dates: start: 200304, end: 20190903
  17. WARFARIN [Concomitant]
     Active Substance: WARFARIN
     Dosage: 3 MG
     Route: 048
     Dates: end: 20200410
  18. NICORANDIL [Concomitant]
     Active Substance: NICORANDIL
     Indication: Pre-existing disease
     Dosage: 5 MG
     Route: 048
     Dates: start: 200304, end: 20190903
  19. NICORANDIL [Concomitant]
     Active Substance: NICORANDIL
     Dosage: 5 MG
     Route: 048
     Dates: end: 20200410
  20. DIGOXIN [Concomitant]
     Active Substance: DIGOXIN
     Indication: Pre-existing disease
     Dosage: 0.125 MG
     Route: 048
     Dates: start: 200304, end: 20190903
  21. DIGOXIN [Concomitant]
     Active Substance: DIGOXIN
     Dosage: 0.125 MG
     Route: 048
     Dates: end: 20200410
  22. ISOSORBIDE MONONITRATE [Concomitant]
     Active Substance: ISOSORBIDE MONONITRATE
     Indication: Pre-existing disease
     Dosage: 20 MG
     Route: 048
     Dates: start: 200304, end: 20190903
  23. ISOSORBIDE MONONITRATE [Concomitant]
     Active Substance: ISOSORBIDE MONONITRATE
     Dosage: 20 MG
     Route: 048
     Dates: end: 20200410
  24. TRIMETAZIDINE DIHYDROCHLORIDE [Concomitant]
     Active Substance: TRIMETAZIDINE DIHYDROCHLORIDE
     Indication: Pre-existing disease
     Dosage: 20 MG
     Route: 048
     Dates: start: 200304, end: 20190903
  25. TRIMETAZIDINE DIHYDROCHLORIDE [Concomitant]
     Active Substance: TRIMETAZIDINE DIHYDROCHLORIDE
     Dosage: 20 MG
     Route: 048
     Dates: end: 20200410
  26. ATORVASTATIN CALCIUM [Concomitant]
     Active Substance: ATORVASTATIN CALCIUM
     Indication: Pre-existing disease
     Dosage: 20 MG
     Route: 048
     Dates: start: 200304, end: 20190903
  27. ATORVASTATIN CALCIUM [Concomitant]
     Active Substance: ATORVASTATIN CALCIUM
     Dosage: 20 MG
     Route: 048
     Dates: end: 20200410
  28. RABEPRAZOLE SODIUM [Concomitant]
     Active Substance: RABEPRAZOLE SODIUM
     Indication: Pre-existing disease
     Dosage: 20 MG
     Route: 048
     Dates: start: 200304, end: 20190903
  29. RABEPRAZOLE SODIUM [Concomitant]
     Active Substance: RABEPRAZOLE SODIUM
     Dosage: 20 MG
     Route: 048
     Dates: start: 200304, end: 20200410
  30. SPIRONOLACTONE [Concomitant]
     Active Substance: SPIRONOLACTONE
     Indication: Pre-existing disease
     Dosage: 20 MG
     Route: 048
     Dates: start: 200304, end: 20190903
  31. SPIRONOLACTONE [Concomitant]
     Active Substance: SPIRONOLACTONE
     Dosage: 20 MG
     Route: 048
     Dates: start: 200304, end: 20200410
  32. CARBOCYSTEINE [Concomitant]
     Active Substance: CARBOCYSTEINE
     Indication: Pre-existing disease
     Dosage: 10 ML
     Route: 048
     Dates: start: 201904, end: 20200410
  33. ALLOPURINOL [Concomitant]
     Active Substance: ALLOPURINOL
     Indication: Pre-existing disease
     Dosage: 1 DF
     Route: 048
     Dates: start: 201904, end: 20200410

REACTIONS (1)
  - Chest discomfort [Recovering/Resolving]

NARRATIVE: CASE EVENT DATE: 20190801
